FAERS Safety Report 5381776-6 (Version None)
Quarter: 2007Q3

REPORT INFORMATION
  Report Type: 
  Country: None (occurrence: None)
  Receive Date: 20070703
  Receipt Date: 20070703
  Transmission Date: 20080115
  Serious: Yes (Hospitalization)
  Sender: FDA-Public Use
  Company Number: None

PATIENT
  Weight: 86.637 kg

DRUGS (10)
  1. RISPERIDONE [Suspect]
     Indication: BIPOLAR I DISORDER
     Dosage: 2MG TAB PO DAILY
     Route: 048
     Dates: start: 20070130, end: 20070131
  2. RISPERIDONE [Suspect]
     Indication: PSYCHOTIC DISORDER
     Dosage: 2MG TAB PO DAILY
     Route: 048
     Dates: start: 20070130, end: 20070131
  3. SIMVASTATIN [Suspect]
     Indication: HYPERLIPIDAEMIA
     Dosage: 20 MG TAB PO 8:30PM
     Route: 048
     Dates: start: 20070130, end: 20070131
  4. VALPROIC ACID SYRUP [Concomitant]
  5. VALPROIC ACID [Concomitant]
  6. ASPIRIN [Concomitant]
  7. LORAZEPAM [Concomitant]
  8. LEVOTHYROXINE SODIUM [Concomitant]
  9. METOTROPROL TARTRATE (LOPRESSOR) [Concomitant]
  10. QUINAPRIL [Concomitant]

REACTIONS (1)
  - RHABDOMYOLYSIS [None]
